FAERS Safety Report 8849926 (Version 3)
Quarter: 2012Q4

REPORT INFORMATION
  Report Type: Report from Study
  Country: MY (occurrence: MY)
  Receive Date: 20121019
  Receipt Date: 20121116
  Transmission Date: 20130627
  Serious: Yes (Hospitalization, Other)
  Sender: FDA-Public Use
  Company Number: MY-ABBOTT-12P-101-0992753-00

PATIENT
  Age: 41 Year
  Sex: Male

DRUGS (2)
  1. KALETRA [Suspect]
     Indication: HIV INFECTION
     Dosage: 100/25 mg
     Route: 048
     Dates: start: 20110520
  2. RALTEGRAVIR [Concomitant]
     Indication: HIV INFECTION
     Route: 048
     Dates: start: 20110520

REACTIONS (4)
  - Pneumonia [Recovered/Resolved]
  - Alcohol poisoning [Unknown]
  - Alcohol withdrawal syndrome [Unknown]
  - Delirium [Recovered/Resolved]
